FAERS Safety Report 7635965-8 (Version None)
Quarter: 2011Q3

REPORT INFORMATION
  Report Type: 
  Country: None (occurrence: None)
  Receive Date: 20110726
  Receipt Date: 20110720
  Transmission Date: 20111222
  Serious: Yes (Death, Hospitalization)
  Sender: FDA-Public Use
  Company Number: TR-ROCHE-745329

PATIENT
  Sex: Female
  Weight: 75 kg

DRUGS (5)
  1. DOCETAXEL [Suspect]
     Dosage: DOSE REDUCED
     Route: 042
     Dates: start: 20100302
  2. BEVACIZUMAB [Suspect]
     Indication: BREAST CANCER METASTATIC
     Dosage: FORM: VIAL
     Route: 042
     Dates: start: 20091112
  3. BEVACIZUMAB [Suspect]
     Route: 042
     Dates: start: 20101112, end: 20101129
  4. DOCETAXEL [Suspect]
     Indication: BREAST CANCER METASTATIC
     Route: 042
     Dates: start: 20091112
  5. BEVACIZUMAB [Suspect]
     Dosage: FORM : VIAL
     Route: 042
     Dates: start: 20100820

REACTIONS (2)
  - RENAL FAILURE [None]
  - ANURIA [None]
